FAERS Safety Report 6816105-1 (Version None)
Quarter: 2010Q3

REPORT INFORMATION
  Report Type: 
  Country: None (occurrence: None)
  Receive Date: 20100702
  Receipt Date: 20100702
  Transmission Date: 20110219
  Serious: No
  Sender: FDA-Public Use
  Company Number: None

PATIENT
  Age: 49 Year
  Sex: Male
  Weight: 105 kg

DRUGS (1)
  1. EPTIFIBATIDE [Suspect]
     Dates: start: 20100427, end: 20100428

REACTIONS (1)
  - THROMBOCYTOPENIA [None]
